FAERS Safety Report 11637503 (Version 1)
Quarter: 2015Q4

REPORT INFORMATION
  Report Type: Spontaneous
  Country: US (occurrence: US)
  Receive Date: 20151016
  Receipt Date: 20151016
  Transmission Date: 20160304
  Serious: No
  Sender: FDA-Public Use
  Company Number: US-PFIZER INC-2015343376

PATIENT
  Sex: Male

DRUGS (2)
  1. CHANTIX [Suspect]
     Active Substance: VARENICLINE TARTRATE
     Indication: SMOKING CESSATION THERAPY
     Dosage: UNK
  2. CHANTIX [Suspect]
     Active Substance: VARENICLINE TARTRATE
     Dosage: UNK
     Dates: end: 20151011

REACTIONS (7)
  - Hypoaesthesia [Unknown]
  - Irritability [Unknown]
  - Sinus disorder [Unknown]
  - Rhinorrhoea [Unknown]
  - Drug ineffective [Unknown]
  - Intentional product misuse [Unknown]
  - Feeling abnormal [Unknown]
